FAERS Safety Report 5140970-X (Version None)
Quarter: 2006Q4

REPORT INFORMATION
  Report Type: 
  Country: None (occurrence: None)
  Receive Date: 20061027
  Receipt Date: 20061027
  Transmission Date: 20070319
  Serious: Yes (Other)
  Sender: FDA-Public Use
  Company Number: None

PATIENT
  Age: 62 Year
  Sex: Female
  Weight: 86.1834 kg

DRUGS (6)
  1. ROZEREM [Suspect]
     Indication: INSOMNIA
     Dosage: 8MG QHS PO
     Route: 048
     Dates: start: 20060830, end: 20060830
  2. GLUCOVANCE [Concomitant]
  3. CELEBREX [Concomitant]
  4. ENALAPRIL MALEATE [Concomitant]
  5. ATENOLOL [Concomitant]
  6. NORTRIPTYLINE HCL [Concomitant]

REACTIONS (6)
  - ANXIETY [None]
  - DRUG INEFFECTIVE [None]
  - FATIGUE [None]
  - FEAR [None]
  - FEELING ABNORMAL [None]
  - HALLUCINATION [None]
